FAERS Safety Report 18544455 (Version 1)
Quarter: 2020Q4

REPORT INFORMATION
  Report Type: Spontaneous
  Country: US (occurrence: US)
  Receive Date: 20201123
  Receipt Date: 20201123
  Transmission Date: 20210114
  Serious: Yes (Other)
  Sender: FDA-Public Use
  Company Number: None

PATIENT
  Age: 22 Month
  Sex: Male
  Weight: 12.3 kg

DRUGS (3)
  1. CYCLOSPASMOL [Concomitant]
     Active Substance: CYCLANDELATE
  2. FLUDARABINE [Concomitant]
     Active Substance: FLUDARABINE PHOSPHATE
  3. KYMRIAH [Suspect]
     Active Substance: TISAGENLECLEUCEL
     Indication: B-CELL LYMPHOMA RECURRENT
     Dates: start: 20190129

REACTIONS (3)
  - Hypotension [None]
  - Cytokine release syndrome [None]
  - Pyrexia [None]

NARRATIVE: CASE EVENT DATE: 20190206
